FAERS Safety Report 9725501 (Version 2)
Quarter: 2013Q4

REPORT INFORMATION
  Report Type: Spontaneous
  Country: US (occurrence: None)
  Receive Date: 20131127
  Receipt Date: 20131216
  Transmission Date: 20140711
  Serious: Yes (Other)
  Sender: FDA-Public Use
  Company Number: 2013-US-003543

PATIENT
  Age: 57 Year
  Sex: Female

DRUGS (1)
  1. XYREM [Suspect]
     Indication: INSOMNIA
     Route: 048
     Dates: start: 201201

REACTIONS (6)
  - Thyroid cancer [None]
  - Adrenal insufficiency [None]
  - Palpitations [None]
  - Insomnia [None]
  - Fatigue [None]
  - Thymoma [None]
